FAERS Safety Report 16652563 (Version 1)
Quarter: 2019Q3

REPORT INFORMATION
  Report Type: Spontaneous
  Country: US (occurrence: US)
  Receive Date: 20190731
  Receipt Date: 20190731
  Transmission Date: 20191004
  Serious: No
  Sender: FDA-Public Use
  Company Number: US-GLAXOSMITHKLINE-US2019135352

PATIENT
  Age: 37 Year
  Sex: Female

DRUGS (2)
  1. ABREVA [Suspect]
     Active Substance: DOCOSANOL
     Indication: ORAL HERPES
     Dosage: APPLICATION, USED IT LAST NIGHT ONLY, 1D
     Route: 062
     Dates: start: 20190723, end: 20190723
  2. ABREVA [Suspect]
     Active Substance: DOCOSANOL
     Dosage: APPLICATION, USED IT LAST NIGHT ONLY, 1D
     Route: 062
     Dates: start: 20190723, end: 20190723

REACTIONS (5)
  - Oral discomfort [Not Recovered/Not Resolved]
  - Inappropriate schedule of product administration [Unknown]
  - Pain [Not Recovered/Not Resolved]
  - Oral herpes [Not Recovered/Not Resolved]
  - Condition aggravated [Not Recovered/Not Resolved]

NARRATIVE: CASE EVENT DATE: 20190724
